FAERS Safety Report 12989957 (Version 2)
Quarter: 2016Q4

REPORT INFORMATION
  Report Type: Spontaneous
  Country: US (occurrence: US)
  Receive Date: 20161201
  Receipt Date: 20161229
  Transmission Date: 20170207
  Serious: Yes (Hospitalization)
  Sender: FDA-Public Use
  Company Number: US-PFIZER INC-2016551850

PATIENT
  Age: 79 Year
  Sex: Female

DRUGS (3)
  1. XALKORI [Suspect]
     Active Substance: CRIZOTINIB
     Indication: LUNG CARCINOMA CELL TYPE UNSPECIFIED STAGE IV
     Dosage: 250 MG, 2X/DAY
     Dates: start: 20150203, end: 20160307
  2. CALCIUM [Concomitant]
     Active Substance: CALCIUM
     Dosage: 500 ML, 2X/DAY
  3. VITAMIN D3 [Concomitant]
     Active Substance: CHOLECALCIFEROL
     Dosage: 2000 ML, 1X/DAY

REACTIONS (11)
  - Asthenia [Unknown]
  - Dysgeusia [Unknown]
  - Pulmonary embolism [Recovered/Resolved]
  - Eating disorder [Recovered/Resolved]
  - Fall [Unknown]
  - Decreased appetite [Unknown]
  - Saliva altered [Unknown]
  - Dizziness [Recovered/Resolved]
  - Gait disturbance [Recovered/Resolved]
  - Discomfort [Unknown]
  - Malaise [Unknown]
